FAERS Safety Report 10083437 (Version 1)
Quarter: 2014Q2

REPORT INFORMATION
  Report Type: Spontaneous
  Country: US (occurrence: None)
  Receive Date: 20140416
  Receipt Date: 20140416
  Transmission Date: 20141212
  Serious: No
  Sender: FDA-Public Use
  Company Number: None

PATIENT
  Age: 70 Year
  Sex: Female

DRUGS (4)
  1. COUMADIN [Suspect]
     Indication: THROMBOSIS PROPHYLAXIS
     Dosage: CHRONIC USE OUTPATIENT
     Route: 048
  2. LISINOPRIL [Concomitant]
  3. CLARITIN [Concomitant]
  4. DUONELE [Concomitant]

REACTIONS (1)
  - International normalised ratio increased [None]
